FAERS Safety Report 18259892 (Version 1)
Quarter: 2020Q3

REPORT INFORMATION
  Report Type: Spontaneous
  Country: RO (occurrence: RO)
  Receive Date: 20200912
  Receipt Date: 20200912
  Transmission Date: 20201103
  Serious: Yes (Other)
  Sender: FDA-Public Use
  Company Number: RO-MACLEODS PHARMACEUTICALS US LTD-MAC2020027773

PATIENT

DRUGS (3)
  1. OXYBUPROCAINE [Concomitant]
     Active Substance: BENOXINATE
     Indication: LOCAL ANAESTHESIA
     Dosage: UNK
     Route: 061
  2. TRIAMCINOLONE ACETONIDE. [Suspect]
     Active Substance: TRIAMCINOLONE ACETONIDE
     Indication: UVEITIS
     Dosage: 4 MILLIGRAM, SINGLE INTRAVITREAL INJECTION OF 4 MG, INTRAOCULAR
  3. POVIDONE IODINATED [Concomitant]
     Indication: STERILISATION
     Dosage: UNK
     Route: 061

REACTIONS (1)
  - Non-infectious endophthalmitis [Recovered/Resolved]
